FAERS Safety Report 6026237-6 (Version None)
Quarter: 2008Q4

REPORT INFORMATION
  Report Type: 
  Country: None (occurrence: None)
  Receive Date: 20081230
  Receipt Date: 20081218
  Transmission Date: 20090506
  Serious: Yes (Hospitalization)
  Sender: FDA-Public Use
  Company Number: 2008-04777

PATIENT
  Age: 84 Year
  Sex: Male
  Weight: 78 kg

DRUGS (4)
  1. VELCADE [Suspect]
     Indication: MULTIPLE MYELOMA
     Dosage: 1.3 MG/M2 UNK UNKNOWN
     Dates: start: 20081105, end: 20081109
  2. ALKERAN [Suspect]
     Indication: MULTIPLE MYELOMA
     Dates: start: 20081105, end: 20081109
  3. THALIDOMIDE [Suspect]
     Indication: MULTIPLE MYELOMA
     Dosage: 50 MG UNK UNKNOWN
     Dates: start: 20081105, end: 20081109
  4. PREDNISONE TAB [Suspect]
     Indication: MULTIPLE MYELOMA

REACTIONS (2)
  - ATRIAL FIBRILLATION [None]
  - CARDIAC FAILURE CONGESTIVE [None]
